FAERS Safety Report 8395605-X (Version None)
Quarter: 2012Q2

REPORT INFORMATION
  Report Type: 
  Country: None (occurrence: None)
  Receive Date: 20120530
  Receipt Date: 20111101
  Transmission Date: 20120825
  Serious: No
  Sender: FDA-Public Use
  Company Number: US-GLAXOSMITHKLINE-A0951780A

PATIENT
  Age: 49 Year
  Sex: Male

DRUGS (2)
  1. VENTOLIN [Suspect]
     Indication: PRODUCT USED FOR UNKNOWN INDICATION
     Route: 055
     Dates: start: 20090101
  2. GOODY'S POWDER [Concomitant]

REACTIONS (4)
  - BREATH ALCOHOL TEST POSITIVE [None]
  - DIZZINESS [None]
  - DYSPNOEA [None]
  - FEELING JITTERY [None]
